FAERS Safety Report 21553701 (Version 12)
Quarter: 2024Q2

REPORT INFORMATION
  Report Type: Spontaneous
  Country: US (occurrence: US)
  Receive Date: 20221104
  Receipt Date: 20240528
  Transmission Date: 20240716
  Serious: Yes (Hospitalization, Disabling, Other)
  Sender: FDA-Public Use
  Company Number: US-ORGANON-O2211USA000130

PATIENT
  Sex: Female
  Weight: 103.1 kg

DRUGS (69)
  1. SINGULAIR [Suspect]
     Active Substance: MONTELUKAST SODIUM
     Indication: Asthma
     Dosage: 1 TABLET EVERY DAY IN THE EVENING
     Route: 048
     Dates: start: 2010, end: 2012
  2. SINGULAIR [Suspect]
     Active Substance: MONTELUKAST SODIUM
     Indication: Hypersensitivity
     Dosage: UNK
     Route: 048
     Dates: start: 2014, end: 2020
  3. SINGULAIR [Suspect]
     Active Substance: MONTELUKAST SODIUM
     Indication: Chronic obstructive pulmonary disease
  4. MONTELUKAST SODIUM [Suspect]
     Active Substance: MONTELUKAST SODIUM
     Indication: Asthma
     Dosage: EVERY DAY IN THE EVENING
     Route: 048
     Dates: start: 20200117
  5. MONTELUKAST SODIUM [Suspect]
     Active Substance: MONTELUKAST SODIUM
     Indication: Hypersensitivity
     Dosage: EVERY DAY IN THE EVENING
     Route: 048
     Dates: start: 20160623, end: 20170320
  6. MONTELUKAST SODIUM [Suspect]
     Active Substance: MONTELUKAST SODIUM
     Dosage: EVERY DAY IN THE EVENING
     Route: 048
     Dates: start: 20151124, end: 20160623
  7. MONTELUKAST SODIUM [Suspect]
     Active Substance: MONTELUKAST SODIUM
     Dosage: EVERY DAY IN THE EVENING
     Route: 048
     Dates: start: 20160623
  8. MONTELUKAST SODIUM [Suspect]
     Active Substance: MONTELUKAST SODIUM
     Dosage: 1 TABLET EVERY DAY IN THE EVENING
     Route: 048
     Dates: end: 202005
  9. MONTELUKAST SODIUM [Suspect]
     Active Substance: MONTELUKAST SODIUM
     Dosage: TAKE 1 TABLET BY ORAL ROUTE EVERY DAY IN  THE EVENING
     Route: 048
     Dates: start: 20190131, end: 20200117
  10. MONTELUKAST SODIUM [Suspect]
     Active Substance: MONTELUKAST SODIUM
     Dosage: TAKE 1 TABLET BY ORAL ROUTE EVERY DAY IN  THE EVENING
     Route: 048
     Dates: start: 20170406, end: 20190131
  11. MONTELUKAST SODIUM [Suspect]
     Active Substance: MONTELUKAST SODIUM
     Dosage: TAKE 1 TABLET BY ORAL ROUTE EVERY DAY IN  THE EVENING
     Route: 048
     Dates: start: 20170320, end: 20170406
  12. CANNABIS SATIVA SUBSP. INDICA TOP [Suspect]
     Active Substance: CANNABIS SATIVA SUBSP. INDICA TOP
     Dosage: UNK
     Dates: start: 1983
  13. CANNABIS SATIVA SUBSP. INDICA TOP [Suspect]
     Active Substance: CANNABIS SATIVA SUBSP. INDICA TOP
     Dosage: UNK
  14. CANNABIS SATIVA SUBSP. INDICA TOP [Suspect]
     Active Substance: CANNABIS SATIVA SUBSP. INDICA TOP
     Dosage: UNK
  15. CANNABIS SATIVA SUBSP. INDICA TOP [Suspect]
     Active Substance: CANNABIS SATIVA SUBSP. INDICA TOP
     Dosage: UNK, QD
     Dates: end: 20190722
  16. CANNABIS SATIVA SUBSP. INDICA TOP [Suspect]
     Active Substance: CANNABIS SATIVA SUBSP. INDICA TOP
     Dosage: UNK
  17. KLONOPIN [Suspect]
     Active Substance: CLONAZEPAM
     Indication: Suicidal ideation
     Dosage: APPROX. 90 (\^A BOTTLE AND A HALF\^)
     Dates: start: 20150729
  18. BUPROPION HYDROCHLORIDE [Concomitant]
     Active Substance: BUPROPION HYDROCHLORIDE
     Dosage: TAKE 1 TABLET BY ORAL ROUTE EVERY DAY
     Route: 048
     Dates: start: 20191210
  19. BUPROPION HYDROCHLORIDE [Concomitant]
     Active Substance: BUPROPION HYDROCHLORIDE
     Dosage: TAKE 1 TABLET BY ORAL ROUTE EVERY DAY
     Route: 048
     Dates: start: 20190318, end: 20190727
  20. BUPROPION HYDROCHLORIDE [Concomitant]
     Active Substance: BUPROPION HYDROCHLORIDE
     Dosage: TAKE 1 TABLET BY ORAL ROUTE EVERY DAY
     Route: 048
     Dates: start: 20181011, end: 20190318
  21. BUPROPION HYDROCHLORIDE [Concomitant]
     Active Substance: BUPROPION HYDROCHLORIDE
     Dosage: TAKE 1 TABLET BY ORAL ROUTE EVERY DAY
     Route: 048
     Dates: start: 20181009, end: 20181011
  22. BUPROPION HYDROCHLORIDE [Concomitant]
     Active Substance: BUPROPION HYDROCHLORIDE
     Dosage: TAKE 1 TABLET BY ORAL ROUTE EVERY DAY
     Route: 048
     Dates: start: 20171109, end: 20181009
  23. BUPROPION HYDROCHLORIDE [Concomitant]
     Active Substance: BUPROPION HYDROCHLORIDE
     Dosage: TAKE 1 TABLET BY ORAL ROUTE EVERY EVENING
     Route: 048
     Dates: start: 20151102, end: 20160623
  24. BUPROPION HYDROCHLORIDE [Concomitant]
     Active Substance: BUPROPION HYDROCHLORIDE
     Dosage: TAKE 1 TABLET BY ORAL ROUTE EVERY EVENING
     Route: 048
     Dates: start: 20151102, end: 20160623
  25. SYNTHROID [Concomitant]
     Active Substance: LEVOTHYROXINE SODIUM
     Dosage: TAKE 1 TABLET BY ORAL ROUTE EVERY DAY
     Route: 048
     Dates: start: 20191010, end: 20191010
  26. SYNTHROID [Concomitant]
     Active Substance: LEVOTHYROXINE SODIUM
     Dosage: TAKE 1 TABLET BY ORAL ROUTE EVERY DAY
     Route: 048
     Dates: start: 20190727, end: 20200724
  27. SYNTHROID [Concomitant]
     Active Substance: LEVOTHYROXINE SODIUM
     Dosage: TAKE 1 TABLET BY ORAL ROUTE EVERY DAY
     Route: 048
     Dates: start: 20190318, end: 20190727
  28. SYNTHROID [Concomitant]
     Active Substance: LEVOTHYROXINE SODIUM
     Dosage: TAKE 1 TABLET BY ORAL ROUTE EVERY DAY
     Route: 048
     Dates: start: 20190131, end: 20190318
  29. SYNTHROID [Concomitant]
     Active Substance: LEVOTHYROXINE SODIUM
     Dosage: TAKE 1 TABLET BY ORAL ROUTE EVERY DAY
     Route: 048
     Dates: start: 20181226, end: 20190131
  30. SYNTHROID [Concomitant]
     Active Substance: LEVOTHYROXINE SODIUM
     Dosage: TAKE 1 TABLET BY ORAL ROUTE EVERY DAY
     Route: 048
     Dates: start: 20171109, end: 20181106
  31. SYNTHROID [Concomitant]
     Active Substance: LEVOTHYROXINE SODIUM
     Dosage: TAKE 1 TABLET BY ORAL ROUTE EVERY DAY
     Route: 048
     Dates: start: 20170406, end: 20171109
  32. SYNTHROID [Concomitant]
     Active Substance: LEVOTHYROXINE SODIUM
     Dosage: TAKE 1 TABLET BY ORAL ROUTE EVERY DAY
     Route: 048
     Dates: start: 20170106, end: 20170406
  33. SYNTHROID [Concomitant]
     Active Substance: LEVOTHYROXINE SODIUM
     Dosage: TAKE 1 TABLET BY ORAL ROUTE EVERY DAY
     Route: 048
     Dates: start: 20160906, end: 20170106
  34. SYNTHROID [Concomitant]
     Active Substance: LEVOTHYROXINE SODIUM
     Dosage: TAKE 1 TABLET BY ORAL ROUTE EVERY DAY
     Route: 048
     Dates: start: 20160501, end: 20160906
  35. SYNTHROID [Concomitant]
     Active Substance: LEVOTHYROXINE SODIUM
     Dosage: TAKE 1 TABLET BY ORAL ROUTE EVERY DAY
     Route: 048
     Dates: start: 20160429, end: 20160501
  36. ZYRTEC [Concomitant]
     Active Substance: CETIRIZINE HYDROCHLORIDE
     Dosage: TAKE 1 TABLET BY ORAL ROUTE EVERY DAY
     Route: 048
     Dates: start: 20191008
  37. ZYRTEC [Concomitant]
     Active Substance: CETIRIZINE HYDROCHLORIDE
     Dosage: TAKE 1 TABLET BY ORAL ROUTE EVERY DAY
     Route: 048
     Dates: start: 20190131, end: 20191008
  38. ZYRTEC [Concomitant]
     Active Substance: CETIRIZINE HYDROCHLORIDE
     Dosage: TAKE 1 TABLET BY ORAL ROUTE EVERY DAY
     Route: 048
     Dates: start: 20181106, end: 20190131
  39. ZYRTEC [Concomitant]
     Active Substance: CETIRIZINE HYDROCHLORIDE
     Dosage: TAKE 1 TABLET BY ORAL ROUTE EVERY DAY
     Route: 048
     Dates: start: 20171109, end: 20181106
  40. ZYRTEC [Concomitant]
     Active Substance: CETIRIZINE HYDROCHLORIDE
     Dosage: TAKE 1 TABLET BY ORAL ROUTE EVERY DAY
     Route: 048
     Dates: start: 20170320, end: 20171109
  41. ZYRTEC [Concomitant]
     Active Substance: CETIRIZINE HYDROCHLORIDE
     Dosage: TAKE 1 TABLET BY ORAL ROUTE EVERY DAY
     Route: 048
     Dates: start: 20160601, end: 20170320
  42. ZYRTEC [Concomitant]
     Active Substance: CETIRIZINE HYDROCHLORIDE
     Dosage: TAKE 1 TABLET BY ORAL ROUTE EVERY DAY
     Route: 048
     Dates: start: 20151124, end: 20160601
  43. OXYBUTYNIN CHLORIDE [Concomitant]
     Active Substance: OXYBUTYNIN CHLORIDE
     Dosage: TAKE 1 TABLET BY ORAL ROUTE EVERY DAY
     Route: 048
     Dates: start: 20190314
  44. NITROGLYCERIN [Concomitant]
     Active Substance: NITROGLYCERIN
     Dosage: PLACE 1 TABLET BY SUBLINGUAL ROUTE AT THE  FIRST SIGN OF AN ATTACK; NO MORE THAN 3 TABS  ARE RECOMME
     Route: 060
     Dates: start: 20190131
  45. ASPIRIN [Concomitant]
     Active Substance: ASPIRIN
     Dosage: TAKE 1 TABLET BY ORAL ROUTE EVERY DAY
     Route: 048
     Dates: start: 20190131
  46. RHINOCORT ALLERGY [Concomitant]
     Active Substance: BUDESONIDE
     Indication: Hypersensitivity
     Dosage: TAKE AS NEEDED
     Dates: start: 20190131
  47. ARMOUR THYROID [Concomitant]
     Active Substance: THYROID, PORCINE
     Dosage: TAKE ONE TABLET BY MOUTH DAILY
     Route: 048
     Dates: start: 20181107, end: 20190131
  48. WELLBUTRIN XL [Concomitant]
     Active Substance: BUPROPION HYDROCHLORIDE
     Dosage: TAKE 1 TABLET BY ORAL ROUTE EVERY DAY
     Route: 048
     Dates: start: 20171109, end: 20171109
  49. OMEPRAZOLE [Concomitant]
     Active Substance: DONEPEZIL HYDROCHLORIDE\OMEPRAZOLE\OMEPRAZOLE MAGNESIUM
     Dosage: TAKE 1 CAPSULE BY ORAL ROUTE EVERY DAY 30  MINUTES TO 1 HOUR BEFORE A MEAL
     Route: 048
     Dates: start: 20171109, end: 20190131
  50. BENTYL [Concomitant]
     Active Substance: DICYCLOMINE HYDROCHLORIDE
     Dosage: TAKE 2 CAPSULE BY ORAL ROUTE 3 TIMES EVERY  DAY
     Route: 048
     Dates: start: 20171109, end: 20190131
  51. VENTOLIN HFA [Concomitant]
     Active Substance: ALBUTEROL SULFATE
     Dosage: INHALE 2 PUFF BY INHALATION ROUTE EVERY 4 -  6 HOURS AS NEEDED
     Dates: start: 20170516
  52. CLONIDINE HYDROCHLORIDE [Concomitant]
     Active Substance: CLONIDINE HYDROCHLORIDE
     Dosage: 1/2 TABLET AT BEDTIME
     Dates: start: 20170406, end: 20171109
  53. DOXYCYCLINE [Concomitant]
     Active Substance: DOXYCYCLINE\DOXYCYCLINE HYCLATE
     Indication: Rosacea
     Dosage: TAKE 1 TABLET BY ORAL ROUTE EVERY DAY WITH  8 OZ OF WATER
     Route: 048
     Dates: start: 20170320, end: 20171109
  54. DOXYCYCLINE [Concomitant]
     Active Substance: DOXYCYCLINE\DOXYCYCLINE HYCLATE
     Dosage: TAKE 1 TABLET BY ORAL ROUTE EVERY DAY WITH  8 OZ OF WATER
     Route: 048
     Dates: start: 20170215, end: 20170215
  55. DOXYCYCLINE [Concomitant]
     Active Substance: DOXYCYCLINE\DOXYCYCLINE HYCLATE
     Dosage: TAKE 1 TABLET BY ORAL ROUTE EVERY DAY WITH  8 OZ OF WATER
     Route: 048
     Dates: start: 20170215, end: 20170320
  56. PROMETHAZINE [Concomitant]
     Active Substance: PROMETHAZINE HYDROCHLORIDE
     Dosage: TAKE 5 MILLILITER BY ORAL ROUTE EVERY 6  HOURS AS NEEDED
     Route: 048
     Dates: start: 20161010, end: 20171109
  57. AUGMENTIN [Concomitant]
     Active Substance: AMOXICILLIN\CLAVULANATE POTASSIUM
     Dosage: TAKE 1 TABLET BY ORAL ROUTE EVERY 12 HOURS
     Route: 048
     Dates: start: 20161010, end: 20170215
  58. FLUTICASONE PROPIONATE [Concomitant]
     Active Substance: FLUTICASONE PROPIONATE
     Dosage: SPRAY 2 SPRAY BY INTRANASAL ROUTE EVERY  DAY IN EACH NOSTRIL
     Dates: start: 20160927, end: 20160927
  59. FLUTICASONE PROPIONATE [Concomitant]
     Active Substance: FLUTICASONE PROPIONATE
     Dosage: SPRAY 2 SPRAY BY INTRANASAL ROUTE EVERY  DAY IN EACH NOSTRIL
     Dates: start: 20160927, end: 20170602
  60. HYDROCORTISONE [Concomitant]
     Active Substance: HYDROCORTISONE
     Indication: Rash
     Dosage: APPLY BY TOPICAL ROUTE 2 TIMES EVERY DAY TO  THE AFFECTED AREA(
     Route: 061
     Dates: start: 20160623
  61. HYDROCORTISONE [Concomitant]
     Active Substance: HYDROCORTISONE
     Indication: Pruritus
  62. AZITHROMYCIN [Concomitant]
     Active Substance: AZITHROMYCIN
     Dosage: TAKE 2 TABLET BY ORAL ROUTE EVERY DAY FOR1  DAY THEN 1 TABLET (250 MG) BY ORAL ROUTE  ONCE DAILY FOR
     Route: 048
     Dates: start: 20160310, end: 20160601
  63. ALBUTEROL SULFATE [Concomitant]
     Active Substance: ALBUTEROL SULFATE
     Dosage: INHALE 2 PUFF BY INHALATION ROUTE EVERY 4 -  6 HOURS AS NEEDED
     Dates: start: 20160310, end: 20171109
  64. HYDROCHLOROTHIAZIDE [Concomitant]
     Active Substance: HYDROCHLOROTHIAZIDE
     Indication: Swelling
     Dosage: TAKE 1 TABLET BY ORAL ROUTE ONCE A DAY AS  NEEDED
     Route: 048
     Dates: start: 20160213, end: 20170406
  65. HYDROCHLOROTHIAZIDE [Concomitant]
     Active Substance: HYDROCHLOROTHIAZIDE
     Dosage: TAKE 1 TABLET BY ORAL ROUTE ONCE A DAY AS  NEEDED
     Route: 048
     Dates: start: 20151215, end: 20160213
  66. HYDROCHLOROTHIAZIDE [Concomitant]
     Active Substance: HYDROCHLOROTHIAZIDE
     Dosage: TAKE 1 TABLET BY ORAL ROUTE ONCE A DAY AS  NEEDED
     Route: 048
     Dates: start: 20151211, end: 20151215
  67. HYDROCHLOROTHIAZIDE [Concomitant]
     Active Substance: HYDROCHLOROTHIAZIDE
     Dosage: TAKE 1 TABLET BY ORAL ROUTE ONCE A DAY AS  NEEDED
     Route: 048
     Dates: start: 20160213
  68. ABILIFY [Concomitant]
     Active Substance: ARIPIPRAZOLE
     Dosage: TAKE 1 TABLET BY ORAL ROUTE EVERY DAY
     Route: 048
     Dates: end: 20160623
  69. EFFEXOR [Concomitant]
     Active Substance: VENLAFAXINE HYDROCHLORIDE
     Dosage: TAKE 1 CAPSULE BY ORAL ROUTE EVERY DAY WITH FOOD
     Route: 048
     Dates: start: 20150531, end: 20160623

REACTIONS (31)
  - Neuropsychological symptoms [Not Recovered/Not Resolved]
  - Major depression [Not Recovered/Not Resolved]
  - Drug abuse [Unknown]
  - Suicidal ideation [Recovered/Resolved]
  - Hypothyroidism [Unknown]
  - Craniocerebral injury [Unknown]
  - Bipolar I disorder [Unknown]
  - Post-traumatic stress disorder [Unknown]
  - Cervical radiculopathy [Unknown]
  - Anxiety [Unknown]
  - Cervix carcinoma stage 0 [Unknown]
  - Depression [Recovered/Resolved]
  - Suicide attempt [Unknown]
  - Self-injurious ideation [Unknown]
  - Obsessive-compulsive disorder [Unknown]
  - Obesity [Unknown]
  - Polycythaemia [Unknown]
  - Somatic symptom disorder [Unknown]
  - Nicotine dependence [Unknown]
  - Seasonal allergy [Unknown]
  - Tendonitis [Unknown]
  - Memory impairment [Unknown]
  - Hyperglycaemia [Unknown]
  - Insomnia [Unknown]
  - Generalised anxiety disorder [Unknown]
  - Fall [Unknown]
  - Head injury [Unknown]
  - Nightmare [Unknown]
  - Intentional overdose [Unknown]
  - Product prescribing issue [Unknown]
  - Product use in unapproved indication [Unknown]

NARRATIVE: CASE EVENT DATE: 20100101
